FAERS Safety Report 4898885-8 (Version None)
Quarter: 2006Q1

REPORT INFORMATION
  Report Type: 
  Country: None (occurrence: None)
  Receive Date: 20060104
  Receipt Date: 20051017
  Transmission Date: 20060701
  Serious: Yes (Other)
  Sender: FDA-Public Use
  Company Number: A03200501713

PATIENT
  Age: 58 Year
  Sex: Male
  Weight: 113 kg

DRUGS (11)
  1. ELOXATIN [Suspect]
     Indication: COLON CANCER
     Dosage: 21 MG Q2W - INTRAVENOUS NOS
     Route: 042
     Dates: start: 20050516, end: 20050516
  2. FLUOROURACIL [Concomitant]
  3. LEUCOVORIN CALCIUM [Concomitant]
  4. PALONOSETRON [Concomitant]
  5. DEXAMETHASONE [Concomitant]
  6. PHENYTOIN SODIUM [Concomitant]
  7. RISPERIDONE [Concomitant]
  8. BENZTROPINE MESYLATE [Concomitant]
  9. ACETAMINOPHEN [Concomitant]
  10. GUAIFENSESIN [Concomitant]
  11. LOPERAMIDE HYDROCHLORIDE [Concomitant]

REACTIONS (6)
  - ERYTHEMA [None]
  - FEELING HOT [None]
  - HYPOTENSION [None]
  - MICTURITION URGENCY [None]
  - OCULAR HYPERAEMIA [None]
  - OXYGEN SATURATION DECREASED [None]
